FAERS Safety Report 14210712 (Version 3)
Quarter: 2017Q4

REPORT INFORMATION
  Report Type: Spontaneous
  Country: SG (occurrence: SG)
  Receive Date: 20171121
  Receipt Date: 20171218
  Transmission Date: 20180321
  Serious: Yes (Other)
  Sender: FDA-Public Use
  Company Number: SG-JNJFOC-20171122432

PATIENT
  Age: 79 Year
  Sex: Male

DRUGS (5)
  1. ZOCOR [Concomitant]
     Active Substance: SIMVASTATIN
     Dosage: EVERY MORNING
     Route: 048
  2. COZAAR [Concomitant]
     Active Substance: LOSARTAN POTASSIUM
     Dosage: EVERY MORNING
     Route: 048
     Dates: start: 1998
  3. STELARA [Suspect]
     Active Substance: USTEKINUMAB
     Indication: PSORIASIS
     Route: 058
     Dates: start: 20121103
  4. PLENDIL [Concomitant]
     Active Substance: FELODIPINE
     Dosage: EVERY MORNING
     Route: 048
  5. ALLOPURINOL. [Concomitant]
     Active Substance: ALLOPURINOL
     Dosage: EVERY MORNING
     Route: 048

REACTIONS (2)
  - Transitional cell carcinoma [Unknown]
  - Polyp [Unknown]

NARRATIVE: CASE EVENT DATE: 201710
